FAERS Safety Report 10670588 (Version 1)
Quarter: 2014Q4

REPORT INFORMATION
  Report Type: Spontaneous
  Country: CA (occurrence: None)
  Receive Date: 20141219
  Receipt Date: 20141219
  Transmission Date: 20150529
  Serious: No
  Sender: FDA-Public Use
  Company Number: A1084766A

PATIENT
  Age: 38 Year
  Sex: Female

DRUGS (1)
  1. PAROXETINE HYDROCHLORIDE TABLETS [Suspect]
     Active Substance: PAROXETINE HYDROCHLORIDE
     Indication: ILL-DEFINED DISORDER
     Route: 048

REACTIONS (6)
  - Nasal congestion [None]
  - Exposure during pregnancy [None]
  - Heart rate increased [None]
  - Hypersensitivity [None]
  - Weight increased [None]
  - Live birth [None]
